FAERS Safety Report 8809324 (Version 1)
Quarter: 2012Q4

REPORT INFORMATION
  Report Type: 
  Country: SE (occurrence: SE)
  Receive Date: 20120926
  Receipt Date: 20120926
  Transmission Date: 20130627
  Serious: Yes (Hospitalization)
  Sender: FDA-Public Use
  Company Number: SE-PFIZER INC-2012232187

PATIENT
  Age: 47 Year
  Sex: Male
  Weight: 117 kg

DRUGS (10)
  1. GENOTROPIN [Suspect]
     Indication: HYPOPITUITARISM
     Dosage: 0.27 mg, 7/wk
     Route: 058
     Dates: start: 20001025
  2. TESTOSTERONE ENANTATE [Concomitant]
     Indication: BLOOD LUTEINISING HORMONE DECREASED
     Dosage: UNK
     Dates: start: 19820606
  3. TESTOSTERONE ENANTATE [Concomitant]
     Indication: BLOOD FOLLICLE STIMULATING HORMONE DECREASED
  4. TESTOSTERONE ENANTATE [Concomitant]
     Indication: HYPOGONADISM MALE
  5. GLUCOPHAGE ^ARON^ [Concomitant]
     Indication: DIABETES MELLITUS
     Dosage: UNK
     Dates: start: 19940815
  6. NEBIDO [Concomitant]
     Indication: BLOOD LUTEINISING HORMONE DECREASED
     Dosage: UNK
     Dates: start: 20061221
  7. NEBIDO [Concomitant]
     Indication: BLOOD FOLLICLE STIMULATING HORMONE DECREASED
  8. NEBIDO [Concomitant]
     Indication: HYPOGONADISM MALE
  9. AVANDIA [Concomitant]
     Indication: ANTIBIOTIC THERAPY
     Dosage: UNK
     Dates: start: 20041118
  10. EFFEXOR [Concomitant]
     Indication: DEPRESSION
     Dosage: UNK
     Dates: start: 20041118

REACTIONS (1)
  - Abscess [Unknown]
